FAERS Safety Report 4718221-7 (Version None)
Quarter: 2005Q3

REPORT INFORMATION
  Report Type: 
  Country: None (occurrence: None)
  Receive Date: 20050719
  Receipt Date: 20050407
  Transmission Date: 20060218
  Serious: Yes (Other)
  Sender: FDA-Public Use
  Company Number: 2005027899

PATIENT
  Age: 80 Year
  Sex: Male
  Weight: 72.5755 kg

DRUGS (12)
  1. CELEBREX [Suspect]
     Indication: OSTEOARTHRITIS
     Dosage: 200 MG (200 MG, 1 IN 1 D), ORAL
     Route: 048
     Dates: start: 20010101, end: 20050126
  2. NSAID'S (NSAID'S) [Suspect]
     Indication: ILL-DEFINED DISORDER
     Dates: end: 20050126
  3. CARVEDILOL [Concomitant]
  4. ESCITALOPRAM OXALATE [Concomitant]
  5. TERAZOSIN (TERAZOSIN) [Concomitant]
  6. DIGOXIN [Concomitant]
  7. FUROSEMIDE [Concomitant]
  8. LOSARTAN POTASSIUM [Concomitant]
  9. WARFARIN SODIUM [Concomitant]
  10. PRAVASTATIN [Concomitant]
  11. MOMETASONE FUROATE [Concomitant]
  12. COSOPT [Concomitant]

REACTIONS (5)
  - ABDOMINAL INJURY [None]
  - GASTRITIS [None]
  - GASTRITIS EROSIVE [None]
  - GASTROINTESTINAL HAEMORRHAGE [None]
  - HAEMATOCHEZIA [None]
